FAERS Safety Report 16665488 (Version 1)
Quarter: 2019Q3

REPORT INFORMATION
  Report Type: Spontaneous
  Country: CA (occurrence: CA)
  Receive Date: 20190803
  Receipt Date: 20190803
  Transmission Date: 20191004
  Serious: Yes (Other)
  Sender: FDA-Public Use
  Company Number: PHHY2019CA178583

PATIENT
  Sex: Male

DRUGS (4)
  1. IRBESARTAN SANDOZ [Suspect]
     Active Substance: IRBESARTAN
     Indication: BLOOD PRESSURE ABNORMAL
     Dosage: 150 MG, QD
     Route: 065
  2. WARFARIN [Concomitant]
     Active Substance: WARFARIN
     Indication: PRODUCT USED FOR UNKNOWN INDICATION
     Dosage: 4 MG, QD
     Route: 065
  3. BISOPROLOL [Suspect]
     Active Substance: BISOPROLOL
     Indication: TACHYCARDIA
     Dosage: 5 MG, QD
     Route: 065
  4. SALOFALK [Concomitant]
     Indication: PRODUCT USED FOR UNKNOWN INDICATION
     Dosage: 500 MG, UNK
     Route: 065

REACTIONS (21)
  - Cold sweat [Unknown]
  - Wheezing [Unknown]
  - Peripheral swelling [Unknown]
  - Nightmare [Unknown]
  - Diarrhoea [Unknown]
  - Chest discomfort [Unknown]
  - Atrial fibrillation [Unknown]
  - Muscle spasms [Unknown]
  - Pain in extremity [Unknown]
  - Pruritus [Unknown]
  - Colitis ulcerative [Unknown]
  - Pain [Unknown]
  - Arrhythmia [Unknown]
  - Erythema [Unknown]
  - Rash [Unknown]
  - Myalgia [Unknown]
  - Appetite disorder [Unknown]
  - Dyspnoea [Unknown]
  - Rhinorrhoea [Unknown]
  - Back pain [Unknown]
  - Weight increased [Unknown]
